FAERS Safety Report 16049525 (Version 1)
Quarter: 2019Q1

REPORT INFORMATION
  Report Type: Spontaneous
  Country: FR (occurrence: FR)
  Receive Date: 20190307
  Receipt Date: 20190307
  Transmission Date: 20190418
  Serious: Yes (Death, Other)
  Sender: FDA-Public Use
  Company Number: FR-BIOGEN-2010BI006198

PATIENT
  Age: 37 Year
  Sex: Female

DRUGS (2)
  1. H1N1 VACCINE [Concomitant]
     Route: 065
     Dates: start: 200911, end: 200911
  2. TYSABRI [Suspect]
     Active Substance: NATALIZUMAB
     Indication: RELAPSING-REMITTING MULTIPLE SCLEROSIS
     Route: 042
     Dates: start: 200806, end: 20100210

REACTIONS (6)
  - Pyelonephritis [Recovered/Resolved]
  - Pneumonia mycoplasmal [Unknown]
  - Acute haemorrhagic leukoencephalitis [Fatal]
  - Actinomycosis [Recovered/Resolved]
  - Laryngitis [Recovered/Resolved]
  - Bronchitis [Recovered/Resolved]

NARRATIVE: CASE EVENT DATE: 200901
